FAERS Safety Report 6310812-5 (Version None)
Quarter: 2009Q3

REPORT INFORMATION
  Report Type: 
  Country: None (occurrence: None)
  Receive Date: 20090812
  Receipt Date: 20090730
  Transmission Date: 20100115
  Serious: Yes (Hospitalization)
  Sender: FDA-Public Use
  Company Number: TPA2009A02139

PATIENT
  Age: 63 Year
  Sex: Female

DRUGS (6)
  1. ACTOS [Suspect]
     Indication: TYPE 2 DIABETES MELLITUS
     Dosage: 15 MG, 1 IN 1 D, PER ORAL; 30 MG, 1 IN 1 D, PER ORAL; 45 MG, 1 IN 1 D, PER ORAL)
     Route: 048
     Dates: end: 20080807
  2. ACTOS [Suspect]
     Indication: TYPE 2 DIABETES MELLITUS
     Dosage: 15 MG, 1 IN 1 D, PER ORAL; 30 MG, 1 IN 1 D, PER ORAL; 45 MG, 1 IN 1 D, PER ORAL)
     Route: 048
     Dates: end: 20090624
  3. ACTOS [Suspect]
     Indication: TYPE 2 DIABETES MELLITUS
     Dosage: 15 MG, 1 IN 1 D, PER ORAL; 30 MG, 1 IN 1 D, PER ORAL; 45 MG, 1 IN 1 D, PER ORAL)
     Route: 048
     Dates: start: 20090625, end: 20090718
  4. GLUCOTROL (GLIPIZIIE) [Concomitant]
  5. GLUCOPHAGE [Concomitant]
  6. ZOCOR [Concomitant]

REACTIONS (3)
  - ATRIOVENTRICULAR BLOCK SECOND DEGREE [None]
  - OEDEMA PERIPHERAL [None]
  - WEIGHT INCREASED [None]
